FAERS Safety Report 9908701 (Version 1)
Quarter: 2014Q1

REPORT INFORMATION
  Report Type: Spontaneous
  Country: US (occurrence: None)
  Receive Date: 20140212
  Receipt Date: 20140212
  Transmission Date: 20141002
  Serious: No
  Sender: FDA-Public Use
  Company Number: None

PATIENT
  Sex: 0

DRUGS (1)
  1. COLGATE PREVIDENT 5000 [Suspect]
     Dates: start: 20070730

REACTIONS (3)
  - Arthralgia [None]
  - Tongue discolouration [None]
  - Tooth injury [None]
